FAERS Safety Report 5140826-2 (Version None)
Quarter: 2006Q4

REPORT INFORMATION
  Report Type: 
  Country: None (occurrence: None)
  Receive Date: 20061026
  Receipt Date: 20061017
  Transmission Date: 20070319
  Serious: Yes (Hospitalization)
  Sender: FDA-Public Use
  Company Number: 2006128688

PATIENT
  Age: 67 Year
  Sex: Female

DRUGS (10)
  1. SERTRALINE [Suspect]
     Dosage: ORAL
     Route: 048
  2. MOLSIDOMINE (MOLSIDOMINE) [Concomitant]
  3. BISOPROLOL FUMARATE [Concomitant]
  4. ASPIRIN [Concomitant]
  5. LORMETAZEPAM (LORMETAZEPAM) [Concomitant]
  6. LORAZEPAM [Concomitant]
  7. ALL OTHER THERAPEUTIC PRODUCTS (ALL OTHER THERAPEUTIC PRODUCTS) [Concomitant]
  8. ALPRAZOLAM [Concomitant]
  9. PIROXICAM [Concomitant]
  10. DAPSONE [Concomitant]

REACTIONS (6)
  - CYANOSIS [None]
  - HAEMOGLOBIN DECREASED [None]
  - METHAEMOGLOBINAEMIA [None]
  - OXYGEN SATURATION DECREASED [None]
  - PO2 DECREASED [None]
  - VASCULAR BYPASS GRAFT [None]
